FAERS Safety Report 25653453 (Version 4)
Quarter: 2025Q3

REPORT INFORMATION
  Report Type: Report from Study
  Country: US (occurrence: US)
  Receive Date: 20250807
  Receipt Date: 20250914
  Transmission Date: 20251021
  Serious: Yes (Life-Threatening, Hospitalization)
  Sender: ABBVIE
  Company Number: US-ABBVIE-6401732

PATIENT
  Age: 57 Year
  Sex: Male
  Weight: 95 kg

DRUGS (12)
  1. FOSCARBIDOPA\FOSLEVODOPA [Suspect]
     Active Substance: FOSCARBIDOPA\FOSLEVODOPA
     Indication: Parkinson^s disease
     Route: 058
     Dates: start: 20250317, end: 20250402
  2. FOSCARBIDOPA\FOSLEVODOPA [Suspect]
     Active Substance: FOSCARBIDOPA\FOSLEVODOPA
     Route: 058
     Dates: start: 20250402
  3. METFORMIN [Concomitant]
     Active Substance: METFORMIN HYDROCHLORIDE
     Indication: Diabetes mellitus
     Route: 048
     Dates: start: 2016, end: 20250803
  4. ATORVASTATIN [Concomitant]
     Active Substance: ATORVASTATIN
     Indication: Hyperlipidaemia
     Route: 048
     Dates: start: 20230810
  5. Cyanocobalmina [Concomitant]
     Indication: Anaemia
     Route: 048
     Dates: start: 20220303
  6. DICYCLOMINE [Concomitant]
     Active Substance: DICYCLOMINE HYDROCHLORIDE
     Indication: Abdominal pain
     Route: 048
     Dates: start: 20220705
  7. TIRZEPATIDE [Concomitant]
     Active Substance: TIRZEPATIDE
     Indication: Diabetes mellitus
     Route: 048
     Dates: start: 20250218
  8. GLIPIZIDE [Concomitant]
     Active Substance: GLIPIZIDE
     Indication: Diabetes mellitus
     Route: 048
     Dates: start: 2016, end: 20250515
  9. GLIPIZIDE [Concomitant]
     Active Substance: GLIPIZIDE
     Indication: Diabetes mellitus
     Route: 048
     Dates: start: 20250515
  10. NAPROXEN [Concomitant]
     Active Substance: NAPROXEN
     Indication: Pain
     Route: 048
     Dates: start: 2010
  11. FLUOROURACIL SODIUM [Concomitant]
     Active Substance: FLUOROURACIL SODIUM
     Indication: Actinic keratosis
     Dosage: 5% APPLICATION
     Route: 061
     Dates: start: 20170105
  12. GABAPENTIN [Concomitant]
     Active Substance: GABAPENTIN
     Indication: Pain
     Dates: start: 20250617

REACTIONS (3)
  - Upper gastrointestinal haemorrhage [Recovered/Resolved]
  - Diabetic ketoacidosis [Recovered/Resolved]
  - Epididymitis [Recovered/Resolved]

NARRATIVE: CASE EVENT DATE: 20250803
